FAERS Safety Report 4653484-8 (Version None)
Quarter: 2005Q2

REPORT INFORMATION
  Report Type: 
  Country: None (occurrence: None)
  Receive Date: 20050505
  Receipt Date: 20050204
  Transmission Date: 20051028
  Serious: Yes (Hospitalization)
  Sender: FDA-Public Use
  Company Number: DE-GLAXOSMITHKLINE-D0045843A

PATIENT
  Age: 50 Year
  Sex: Male
  Weight: 73 kg

DRUGS (6)
  1. ZYBAN [Suspect]
     Route: 048
     Dates: start: 20050128, end: 20050205
  2. AMITRIPTYLINE HYDROCHLORIDE [Suspect]
     Indication: DEPRESSION
     Dosage: 350MG PER DAY
     Route: 048
     Dates: start: 20040113
  3. PANTOPRAZOLE SODIUM [Concomitant]
     Dosage: 40MG PER DAY
     Route: 048
     Dates: start: 20041124
  4. REMERGIL [Concomitant]
     Indication: DEPRESSION
     Dosage: 45MG PER DAY
     Route: 048
     Dates: start: 20041126
  5. SEROQUEL [Concomitant]
     Indication: DEPRESSION
     Dosage: 300MG PER DAY
     Route: 048
     Dates: start: 20041229
  6. PARACETAMOL [Concomitant]
     Indication: HEADACHE
     Dosage: 300MG PER DAY
     Route: 048
     Dates: start: 20050202, end: 20050203

REACTIONS (3)
  - COORDINATION ABNORMAL [None]
  - DRUG INTERACTION [None]
  - MUSCLE TWITCHING [None]
